FAERS Safety Report 21896453 (Version 2)
Quarter: 2023Q1

REPORT INFORMATION
  Report Type: Spontaneous
  Country: CZ (occurrence: None)
  Receive Date: 20230123
  Receipt Date: 20230127
  Transmission Date: 20230417
  Serious: Yes (Other)
  Sender: FDA-Public Use
  Company Number: CZ-ROCHE-3266307

PATIENT
  Age: 27 Year
  Sex: Male

DRUGS (6)
  1. POLATUZUMAB VEDOTIN [Suspect]
     Active Substance: POLATUZUMAB VEDOTIN
     Indication: Diffuse large B-cell lymphoma
     Dosage: NOV-DEC/2022 ADMINISTERED POLATUZUMAB-RITUXIMAB TWICE
     Route: 065
  2. RITUXIMAB [Suspect]
     Active Substance: RITUXIMAB
     Indication: Diffuse large B-cell lymphoma
     Dosage: /JUL/2022,  /AUG/2022 AND (11-12/2022 ADMINISTERED 2X)
     Route: 041
     Dates: start: 20220701
  3. DOXORUBICIN [Suspect]
     Active Substance: DOXORUBICIN
     Indication: Diffuse large B-cell lymphoma
     Dosage: /JUL/2022 AND /AUG/2022
     Route: 065
     Dates: start: 20220701
  4. VINCRISTINE [Suspect]
     Active Substance: VINCRISTINE
     Indication: Diffuse large B-cell lymphoma
     Dosage: /JUL/2022 AND /AUG/2022
     Route: 065
     Dates: start: 20220701
  5. PREDNISONE [Suspect]
     Active Substance: PREDNISONE
     Indication: Diffuse large B-cell lymphoma
     Route: 065
     Dates: start: 20220701
  6. CYCLOPHOSPHAMIDE [Suspect]
     Active Substance: CYCLOPHOSPHAMIDE
     Indication: Diffuse large B-cell lymphoma
     Dosage: /JUL/2022 AND /AUG/2022
     Route: 065
     Dates: start: 20220701

REACTIONS (18)
  - Neutropenia [Unknown]
  - Thrombocytopenia [Unknown]
  - Anaemia [Unknown]
  - Liver disorder [Unknown]
  - Hypofibrinogenaemia [Unknown]
  - Anaemia [Unknown]
  - Sepsis [Unknown]
  - Hepatotoxicity [Unknown]
  - Mucosal inflammation [Unknown]
  - Haematotoxicity [Unknown]
  - Off label use [Unknown]
  - Pneumonia respiratory syncytial viral [Unknown]
  - Coagulopathy [Unknown]
  - Haemoptysis [Unknown]
  - Thrombosis in device [Not Recovered/Not Resolved]
  - Parainfluenzae virus infection [Unknown]
  - Superinfection fungal [Unknown]
  - Superinfection bacterial [Unknown]
